FAERS Safety Report 6467595-8 (Version None)
Quarter: 2009Q4

REPORT INFORMATION
  Report Type: 
  Country: None (occurrence: None)
  Receive Date: 20091202
  Receipt Date: 20081113
  Transmission Date: 20100525
  Serious: No
  Sender: FDA-Public Use
  Company Number: US-AMGEN-KDL319031

PATIENT
  Sex: Female

DRUGS (1)
  1. ENBREL [Suspect]
     Indication: PSORIATIC ARTHROPATHY
     Route: 058
     Dates: start: 20080903

REACTIONS (4)
  - CHEST PAIN [None]
  - LETHARGY [None]
  - PAIN IN EXTREMITY [None]
  - WEIGHT INCREASED [None]
